FAERS Safety Report 21831692 (Version 3)
Quarter: 2024Q3

REPORT INFORMATION
  Report Type: Spontaneous
  Country: CA (occurrence: CA)
  Receive Date: 20230106
  Receipt Date: 20240925
  Transmission Date: 20241017
  Serious: Yes (Other)
  Sender: JOHNSON AND JOHNSON
  Company Number: CA-VIIV HEALTHCARE LIMITED-CA2022195891

PATIENT
  Age: 62 Year
  Sex: Female

DRUGS (4)
  1. RILPIVIRINE [Suspect]
     Active Substance: RILPIVIRINE
     Indication: HIV infection
     Dosage: UNK UNK, MO (INITIATION (1ST + 2ND 3ML(600/900MG) 1 MONTH APART, CONTINUATION 2 MONTHS APART)
     Route: 030
     Dates: start: 20221215, end: 20221215
  2. CABOTEGRAVIR [Suspect]
     Active Substance: CABOTEGRAVIR
     Indication: HIV infection
     Dosage: UNK UNK, MO (INITIATION (1ST + 2ND 3ML(600/900MG) 1 MONTH APART, CONTINUATION 2 MONTHS APART)
     Route: 030
     Dates: start: 20221215, end: 20221215
  3. VOCABRIA [Concomitant]
     Active Substance: CABOTEGRAVIR SODIUM
     Indication: HIV infection
     Dosage: UNK
     Route: 048
  4. EDURANT [Concomitant]
     Active Substance: RILPIVIRINE HYDROCHLORIDE
     Indication: HIV infection
     Dosage: UNK
     Route: 048

REACTIONS (4)
  - Intracranial aneurysm [Unknown]
  - Gait disturbance [Unknown]
  - Weight decreased [Unknown]
  - Muscle atrophy [Unknown]
